FAERS Safety Report 13314571 (Version 1)
Quarter: 2017Q1

REPORT INFORMATION
  Report Type: Spontaneous
  Country: FR (occurrence: FR)
  Receive Date: 20170309
  Receipt Date: 20170309
  Transmission Date: 20170428
  Serious: Yes (Hospitalization, Disabling, Other)
  Sender: FDA-Public Use
  Company Number: FR-GILEAD-2017-0261371

PATIENT
  Age: 64 Year
  Sex: Male

DRUGS (10)
  1. PARIET [Concomitant]
     Active Substance: RABEPRAZOLE SODIUM
  2. TRUVADA [Suspect]
     Active Substance: EMTRICITABINE\TENOFOVIR DISOPROXIL FUMARATE
     Indication: HIV INFECTION
     Dosage: 1 DF, QD
     Route: 048
     Dates: start: 2008, end: 20170131
  3. FUROSEMIDE. [Concomitant]
     Active Substance: FUROSEMIDE
  4. PREZISTA [Concomitant]
     Active Substance: DARUNAVIR ETHANOLATE
  5. METFORMINE [Concomitant]
     Active Substance: METFORMIN HYDROCHLORIDE
  6. NORVIR [Concomitant]
     Active Substance: RITONAVIR
  7. PREVISCAN                          /00261401/ [Concomitant]
     Active Substance: PENTOXIFYLLINE
  8. PRAVASTATINE SODIUM ACCORD [Concomitant]
  9. BISOPROLOL [Concomitant]
     Active Substance: BISOPROLOL
  10. RAMIPRIL. [Concomitant]
     Active Substance: RAMIPRIL

REACTIONS (3)
  - Pancytopenia [Recovering/Resolving]
  - Acute kidney injury [Not Recovered/Not Resolved]
  - Renal tubular disorder [Not Recovered/Not Resolved]

NARRATIVE: CASE EVENT DATE: 20170131
